FAERS Safety Report 4873132-1 (Version None)
Quarter: 2006Q1

REPORT INFORMATION
  Report Type: 
  Country: None (occurrence: None)
  Receive Date: 20060105
  Receipt Date: 20050706
  Transmission Date: 20060701
  Serious: Yes (Hospitalization)
  Sender: FDA-Public Use
  Company Number: FR-GLAXOSMITHKLINE-B0386901A

PATIENT
  Age: 72 Year
  Sex: Male

DRUGS (9)
  1. AUGMENTIN '125' [Suspect]
     Indication: STREPTOCOCCAL INFECTION
     Dosage: 2G PER DAY
     Route: 042
     Dates: start: 20050403, end: 20050405
  2. LOVENOX [Suspect]
     Dosage: 20MG PER DAY
     Route: 058
     Dates: start: 20050403, end: 20050405
  3. OFLOCET [Suspect]
     Indication: STREPTOCOCCAL INFECTION
     Dosage: 1UNIT PER DAY
     Route: 065
     Dates: start: 20050403, end: 20050415
  4. TARGOCID [Suspect]
     Indication: STREPTOCOCCAL INFECTION
     Dosage: 400MG TWICE PER DAY
     Route: 042
     Dates: start: 20050405, end: 20050415
  5. VASTEN 20 [Concomitant]
     Dosage: 10MG PER DAY
     Route: 048
     Dates: start: 20050409
  6. MOPRAL [Concomitant]
     Dosage: 10MG PER DAY
     Route: 048
  7. PERFALGAN [Concomitant]
     Dosage: 3G PER DAY
     Route: 042
     Dates: start: 20050403
  8. ANAFRANIL [Concomitant]
     Dosage: 100MG PER DAY
     Route: 048
  9. ORGARAN [Concomitant]
     Route: 058
     Dates: start: 20050405

REACTIONS (1)
  - HEPATITIS CHOLESTATIC [None]
